FAERS Safety Report 15321728 (Version 1)
Quarter: 2018Q3

REPORT INFORMATION
  Report Type: Spontaneous
  Country: FR (occurrence: FR)
  Receive Date: 20180827
  Receipt Date: 20180827
  Transmission Date: 20181010
  Serious: Yes (Hospitalization)
  Sender: FDA-Public Use
  Company Number: FR-BAUSCH-BL-2018-023140

PATIENT
  Age: 79 Year
  Sex: Female
  Weight: 49 kg

DRUGS (36)
  1. UVEDOSE [Concomitant]
     Active Substance: CHOLECALCIFEROL
     Indication: VITAMIN D DEFICIENCY
     Route: 048
     Dates: start: 20170221
  2. LEVOTHYROXINE. [Concomitant]
     Active Substance: LEVOTHYROXINE
     Indication: HYPOTHYROIDISM
     Route: 048
  3. LOVENOX [Concomitant]
     Active Substance: ENOXAPARIN SODIUM
     Route: 058
     Dates: start: 20160128
  4. TINZAPARINE SODIQUE [Concomitant]
     Indication: THROMBOSIS PROPHYLAXIS
     Route: 058
     Dates: start: 20160322
  5. FLUCONAZOLE. [Concomitant]
     Active Substance: FLUCONAZOLE
     Indication: MUCOSAL INFLAMMATION
     Route: 048
     Dates: start: 20160118, end: 20160125
  6. DOMPERIDONE [Concomitant]
     Active Substance: DOMPERIDONE
     Indication: NAUSEA
     Route: 048
     Dates: start: 2004
  7. DIOSMECTITE [Concomitant]
     Active Substance: MONTMORILLONITE
     Indication: INFECTION PROPHYLAXIS
     Route: 048
     Dates: start: 20151130
  8. PANTOPRAZOLE [Concomitant]
     Active Substance: PANTOPRAZOLE
     Indication: ABDOMINAL PAIN UPPER
     Route: 048
     Dates: start: 2004
  9. DARATUMUMAB [Concomitant]
     Active Substance: DARATUMUMAB
     Indication: PLASMA CELL MYELOMA
     Route: 041
     Dates: start: 20170125
  10. BROMAZEPAM [Concomitant]
     Active Substance: BROMAZEPAM
     Indication: DEPRESSION
     Route: 048
     Dates: start: 2004
  11. DEXAMETHASONE ORAL [Suspect]
     Active Substance: DEXAMETHASONE
     Route: 048
     Dates: start: 20160104, end: 20160607
  12. MACROGOL [Concomitant]
     Active Substance: POLYETHYLENE GLYCOLS
     Indication: CONSTIPATION
     Route: 065
     Dates: start: 20170220
  13. IMODIUM [Concomitant]
     Active Substance: LOPERAMIDE HYDROCHLORIDE
     Indication: DIARRHOEA
     Route: 048
     Dates: start: 20151214
  14. LOVENOX [Concomitant]
     Active Substance: ENOXAPARIN SODIUM
     Indication: THROMBOSIS PROPHYLAXIS
     Route: 058
     Dates: start: 20160128
  15. PRAVASTATINE [Concomitant]
     Active Substance: PRAVASTATIN
     Indication: HYPERCHOLESTEROLAEMIA
     Route: 048
     Dates: start: 2004
  16. DEXAMETHASONE ORAL [Suspect]
     Active Substance: DEXAMETHASONE
     Route: 048
     Dates: start: 20170810
  17. REVLIMID [Suspect]
     Active Substance: LENALIDOMIDE
     Dosage: 10 MILLIGRAM
     Route: 048
     Dates: start: 20151123
  18. LEVOTHYROXINE. [Concomitant]
     Active Substance: LEVOTHYROXINE
     Route: 048
     Dates: start: 2004
  19. TINZAPARINE SODIQUE [Concomitant]
     Dosage: 0.05 MILLILITER
     Route: 058
     Dates: start: 20151123
  20. PARACETAMOL [Concomitant]
     Active Substance: ACETAMINOPHEN
     Indication: NAUSEA
     Route: 048
     Dates: start: 201506
  21. DARATUMUMAB [Concomitant]
     Active Substance: DARATUMUMAB
     Route: 041
     Dates: start: 20170720
  22. DEXAMETHASONE ORAL [Suspect]
     Active Substance: DEXAMETHASONE
     Route: 048
     Dates: start: 20160620, end: 20170215
  23. DIFFU K [Concomitant]
     Active Substance: POTASSIUM CHLORIDE
     Indication: HYPOKALAEMIA
     Route: 048
     Dates: start: 20170221
  24. FENTANYL CITRATE. [Concomitant]
     Active Substance: FENTANYL CITRATE
     Indication: BONE PAIN
     Route: 048
     Dates: start: 20151104
  25. DEXAMETHASONE ORAL [Suspect]
     Active Substance: DEXAMETHASONE
     Indication: PLASMA CELL MYELOMA
     Route: 048
     Dates: start: 20151123, end: 20151228
  26. REVLIMID [Suspect]
     Active Substance: LENALIDOMIDE
     Indication: PLASMA CELL MYELOMA
     Dosage: 10 MILLIGRAM
     Route: 048
     Dates: start: 20170720
  27. VALACICLOVIR [Concomitant]
     Active Substance: VALACYCLOVIR HYDROCHLORIDE
     Indication: INFECTION PROPHYLAXIS
     Route: 048
     Dates: start: 20151123
  28. CICLETANINE HYDROCHLORIDE [Concomitant]
     Active Substance: CICLETANINE HYDROCHLORIDE
     Indication: HYPERTENSION
     Route: 048
     Dates: start: 20151002
  29. DEXAMETHASONE ORAL [Suspect]
     Active Substance: DEXAMETHASONE
     Route: 048
     Dates: start: 20160613, end: 20160613
  30. REVLIMID [Suspect]
     Active Substance: LENALIDOMIDE
     Dosage: 10 MILLIGRAM
     Route: 048
     Dates: start: 20170125
  31. EDUCTYL [Concomitant]
     Active Substance: POTASSIUM BITARTRATE\SODIUM BICARBONATE
     Indication: CONSTIPATION
     Route: 054
     Dates: start: 20170221, end: 20170318
  32. FENTANYL. [Concomitant]
     Active Substance: FENTANYL
     Indication: NAUSEA
     Route: 061
     Dates: start: 20151112
  33. FENTANYL. [Concomitant]
     Active Substance: FENTANYL
     Indication: PELVIC PAIN
     Route: 065
  34. DARATUMUMAB [Concomitant]
     Active Substance: DARATUMUMAB
     Route: 041
     Dates: start: 20151123
  35. FOLIC ACID. [Concomitant]
     Active Substance: FOLIC ACID
     Indication: ANAEMIA
     Route: 048
     Dates: start: 2004
  36. EPOETIN BETA [Concomitant]
     Active Substance: ERYTHROPOIETIN
     Indication: ANAEMIA
     Dosage: 4285.7143 IU (INTERNATIONAL UNIT)
     Route: 058
     Dates: start: 20151130

REACTIONS (2)
  - Hypokalaemia [Not Recovered/Not Resolved]
  - Intervertebral disc compression [Recovered/Resolved with Sequelae]

NARRATIVE: CASE EVENT DATE: 20170220
